FAERS Safety Report 5755971-8 (Version None)
Quarter: 2008Q2

REPORT INFORMATION
  Report Type: 
  Country: None (occurrence: None)
  Receive Date: 20080528
  Receipt Date: 20080513
  Transmission Date: 20081010
  Serious: No
  Sender: FDA-Public Use
  Company Number: US023522

PATIENT
  Age: 42 Year
  Sex: Female
  Weight: 55.7924 kg

DRUGS (6)
  1. FENTORA [Suspect]
     Indication: COMPLEX REGIONAL PAIN SYNDROME
     Dosage: 600 UG TID BUCCAL
     Route: 002
     Dates: start: 20070601
  2. KEPPRA [Concomitant]
  3. PRILOSEC [Concomitant]
  4. VALIUM [Concomitant]
  5. DILANTIN [Concomitant]
  6. RESTORIL [Concomitant]

REACTIONS (6)
  - DRUG INEFFECTIVE [None]
  - DRUG WITHDRAWAL SYNDROME [None]
  - MEDICATION ERROR [None]
  - PALPITATIONS [None]
  - PHARMACEUTICAL PRODUCT COMPLAINT [None]
  - TREMOR [None]
